FAERS Safety Report 4978891-5 (Version None)
Quarter: 2006Q2

REPORT INFORMATION
  Report Type: 
  Country: None (occurrence: None)
  Receive Date: 20060417
  Receipt Date: 20060329
  Transmission Date: 20061013
  Serious: Yes (Hospitalization)
  Sender: FDA-Public Use
  Company Number: 2005-02587

PATIENT
  Age: 63 Year
  Sex: Female
  Weight: 53 kg

DRUGS (30)
  1. VELCADE [Suspect]
     Indication: MULTIPLE MYELOMA
     Dosage: SEE IMAGE
     Route: 042
     Dates: start: 20050715, end: 20050719
  2. VELCADE [Suspect]
     Indication: MULTIPLE MYELOMA
     Dosage: SEE IMAGE
     Route: 042
     Dates: start: 20050805, end: 20050815
  3. VELCADE [Suspect]
     Indication: MULTIPLE MYELOMA
     Dosage: SEE IMAGE
     Route: 042
     Dates: start: 20050826, end: 20050905
  4. VELCADE [Suspect]
     Indication: MULTIPLE MYELOMA
     Dosage: SEE IMAGE
     Route: 042
     Dates: start: 20050930, end: 20051011
  5. VELCADE [Suspect]
     Indication: MULTIPLE MYELOMA
     Dosage: SEE IMAGE
     Route: 042
     Dates: start: 20051104, end: 20051114
  6. VELCADE [Suspect]
     Indication: MULTIPLE MYELOMA
     Dosage: SEE IMAGE
     Route: 042
     Dates: start: 20051202, end: 20051212
  7. FOSAMAX [Concomitant]
  8. SULFAMETHOXAZOLE + TRIMETHOPRIM [Concomitant]
  9. BROTIZOLAM (BROTIZOLAM) [Concomitant]
  10. POVIDONE IODINE [Concomitant]
  11. LOXONIN (LOXOPROFEN SODIUM) [Concomitant]
  12. DICLOFENAC SODIUM [Concomitant]
  13. PL GRAN. (CAFFEINE, PARACETAMOL, PROMETHAZINE METHYLENE DISALICYLATE, [Concomitant]
  14. TRANSAMIN (TRANEXAMIC ACID) [Concomitant]
  15. AREDIA [Concomitant]
  16. KETOPROFEN [Concomitant]
  17. METHYL SALICYLATE (METHYL SALICYLATE) [Concomitant]
  18. CAPSAICIN (CAPSAICIN) [Concomitant]
  19. CAMPHOR (CAMPHOR) [Concomitant]
  20. SENNOSIDE A (SENNOSIDE A) [Concomitant]
  21. SANCOBA (CYANOCOBALAMIN) [Concomitant]
  22. MAGNESIUM OXIDE (MAGNESIUM OXIDE) [Concomitant]
  23. LEBENIN (STREPTOCOCCUS FAECALIS, LACTOBACILLUS BIFIDUS, LYOPHILIZED, L [Concomitant]
  24. CLEANAL (FUDOSTEINE) [Concomitant]
  25. MUCOSTA (REBAMIPIDE) [Concomitant]
  26. SWORD (TULOBUTEROL) [Concomitant]
  27. TULOBUTEROL (TULOBUTEROL) [Concomitant]
  28. MEROPEN (MEROPENEM) [Concomitant]
  29. ATARAX [Concomitant]
  30. SOLITA-T 3G (SODIUM LACTATE, SODIUM CHLORIDE, POTASSIUM CHLORIDE, CARB [Concomitant]

REACTIONS (29)
  - ALANINE AMINOTRANSFERASE INCREASED [None]
  - ASPARTATE AMINOTRANSFERASE INCREASED [None]
  - BLOOD ALKALINE PHOSPHATASE INCREASED [None]
  - BLOOD CHLORIDE DECREASED [None]
  - BLOOD LACTATE DEHYDROGENASE INCREASED [None]
  - BLOOD PH INCREASED [None]
  - BLOOD SODIUM DECREASED [None]
  - BRONCHOPNEUMONIA [None]
  - CANDIDIASIS [None]
  - DEHYDRATION [None]
  - DIARRHOEA [None]
  - DISEASE PROGRESSION [None]
  - ENTEROCOLITIS [None]
  - FAECAL INCONTINENCE [None]
  - HAEMOGLOBIN DECREASED [None]
  - LUNG DISORDER [None]
  - LUNG INFECTION [None]
  - NASOPHARYNGITIS [None]
  - NEUTROPHIL COUNT DECREASED [None]
  - PCO2 DECREASED [None]
  - PLATELET COUNT DECREASED [None]
  - PLATELET COUNT INCREASED [None]
  - PNEUMONIA [None]
  - PO2 DECREASED [None]
  - PSEUDOMONAS INFECTION [None]
  - PULMONARY OEDEMA [None]
  - SPUTUM CULTURE POSITIVE [None]
  - VOMITING [None]
  - WHITE BLOOD CELL COUNT DECREASED [None]
